FAERS Safety Report 11074746 (Version 1)
Quarter: 2015Q2

REPORT INFORMATION
  Report Type: Spontaneous
  Country: PE (occurrence: PE)
  Receive Date: 20150429
  Receipt Date: 20150429
  Transmission Date: 20150821
  Serious: Yes (Other)
  Sender: FDA-Public Use
  Company Number: PE-TEVA-516229ISR

PATIENT
  Age: 22 Year
  Sex: Female
  Weight: 72 kg

DRUGS (1)
  1. DHA MATHERN [Suspect]
     Active Substance: FISH OIL
     Indication: NUTRITIONAL SUPPLEMENTATION
     Dosage: 2 DOSAGE FORMS DAILY; 1 CAPSULE CONTAINS 497,5 MG OF FISH OIL EQUIVALENT TO DHA 250MG + EPA 100MG
     Route: 048
     Dates: start: 201403, end: 201403

REACTIONS (4)
  - Caesarean section [Recovered/Resolved]
  - Pruritus [Recovered/Resolved]
  - Maternal exposure during pregnancy [None]
  - Normal newborn [Unknown]

NARRATIVE: CASE EVENT DATE: 201403
